FAERS Safety Report 8273611-3 (Version None)
Quarter: 2012Q2

REPORT INFORMATION
  Report Type: 
  Country: None (occurrence: None)
  Receive Date: 20120411
  Receipt Date: 20120404
  Transmission Date: 20120825
  Serious: No
  Sender: FDA-Public Use
  Company Number: US-PFIZER INC-2012086344

PATIENT
  Sex: Female

DRUGS (4)
  1. PENICILLIN [Suspect]
  2. KEFLEX [Suspect]
     Dosage: UNK
  3. CEFTIN [Suspect]
     Dosage: UNK
  4. SKELAXIN [Suspect]
     Dosage: UNK

REACTIONS (1)
  - DRUG HYPERSENSITIVITY [None]
